FAERS Safety Report 22120007 (Version 1)
Quarter: 2023Q1

REPORT INFORMATION
  Report Type: Report from Study
  Country: US (occurrence: US)
  Receive Date: 20230321
  Receipt Date: 20230321
  Transmission Date: 20230417
  Serious: Yes (Hospitalization)
  Sender: FDA-Public Use
  Company Number: US-UCBSA-2023012081

PATIENT
  Age: 8 Year
  Sex: Female
  Weight: 28.9 kg

DRUGS (6)
  1. CERTOLIZUMAB PEGOL [Suspect]
     Active Substance: CERTOLIZUMAB PEGOL
     Indication: Juvenile idiopathic arthritis
     Dosage: 100 MILLIGRAM AS DIRECTED, INJECT 100 MG (0.5 ML) SUBCUTANEOUSLY IN THE  UPPER OUTER THIGH OR ABDOME
     Route: 058
     Dates: start: 20230118
  2. KEFLEX [Concomitant]
     Active Substance: CEPHALEXIN
     Indication: Streptococcal infection
     Dosage: 250 MILLIGRAM
     Route: 048
     Dates: start: 20230122
  3. VENTOLIN HFA [Concomitant]
     Active Substance: ALBUTEROL SULFATE
     Indication: Asthma
     Dosage: 2 PUFFS UP TO EVERY 4 HOURS PRN
  4. PROVENTIL HFA [Concomitant]
     Active Substance: ALBUTEROL SULFATE
     Indication: Asthma
     Dosage: 1 UNIT DOSE UP TO EVERY 4 HOURS PRN
  5. FLOVENT HFA [Concomitant]
     Active Substance: FLUTICASONE PROPIONATE
     Indication: Asthma
     Dosage: INHALE 2 PUFFS BY MOUTH 2 TIMES DAILY
  6. ZYRTEC [Concomitant]
     Active Substance: CETIRIZINE HYDROCHLORIDE
     Indication: Rhinitis allergic
     Dosage: 5 MILLILITER, DAILY
     Route: 048

REACTIONS (1)
  - Idiopathic generalised epilepsy [Recovered/Resolved]

NARRATIVE: CASE EVENT DATE: 20230127
